FAERS Safety Report 14518082 (Version 1)
Quarter: 2018Q1

REPORT INFORMATION
  Report Type: Spontaneous
  Country: US (occurrence: US)
  Receive Date: 20180209
  Receipt Date: 20180209
  Transmission Date: 20180509
  Serious: No
  Sender: FDA-Public Use
  Company Number: None

PATIENT
  Age: 46 Year
  Sex: Female

DRUGS (1)
  1. BUPRENORPHINE /NALOXONE SUBLINGUAL TABLETS [Suspect]
     Active Substance: BUPRENORPHINE\NALOXONE
     Indication: HEADACHE
     Route: 048

REACTIONS (1)
  - Headache [None]

NARRATIVE: CASE EVENT DATE: 20180115
